FAERS Safety Report 5706555-9 (Version None)
Quarter: 2008Q2

REPORT INFORMATION
  Report Type: 
  Country: None (occurrence: None)
  Receive Date: 20080415
  Receipt Date: 20080403
  Transmission Date: 20081010
  Serious: Yes (Death, Hospitalization)
  Sender: FDA-Public Use
  Company Number: FR-ELI_LILLY_AND_COMPANY-FR200804000807

PATIENT
  Sex: Female

DRUGS (2)
  1. XIGRIS [Suspect]
     Indication: SEPTIC SHOCK
     Route: 042
     Dates: start: 20071231, end: 20080104
  2. HEPARIN [Concomitant]

REACTIONS (4)
  - ANAEMIA [None]
  - DEATH [None]
  - HAEMATEMESIS [None]
  - THROMBOCYTOPENIA [None]
